FAERS Safety Report 4999653-9 (Version None)
Quarter: 2006Q2

REPORT INFORMATION
  Report Type: 
  Country: None (occurrence: None)
  Receive Date: 20060509
  Receipt Date: 20060503
  Transmission Date: 20061013
  Serious: Yes (Other)
  Sender: FDA-Public Use
  Company Number: S06-USA-00516-01

PATIENT
  Age: 45 Year
  Sex: Female
  Weight: 40.8237 kg

DRUGS (13)
  1. NAMENDA [Suspect]
     Indication: NERVOUS SYSTEM DISORDER
     Dosage: 5 MG BID PO
     Route: 048
     Dates: start: 20051201, end: 20060109
  2. NAMENDA [Suspect]
     Indication: NERVOUS SYSTEM DISORDER
     Dosage: 5 MG BID PO
     Route: 048
     Dates: start: 20060110, end: 20060101
  3. NAMENDA [Suspect]
     Indication: NERVOUS SYSTEM DISORDER
     Dates: start: 20060101
  4. TOPAMAX [Concomitant]
  5. CYMBALTA [Concomitant]
  6. OXYCODONE [Concomitant]
  7. AMITRIPTYLINE HCL [Concomitant]
  8. ZOFRAN [Concomitant]
  9. ZANAFLEX [Concomitant]
  10. PROVIGIL [Concomitant]
  11. PREMPRO [Concomitant]
  12. PERCOCET [Concomitant]
  13. NORTRIPTYLINE HCL [Concomitant]

REACTIONS (3)
  - LEGAL PROBLEM [None]
  - MANIA [None]
  - ROAD TRAFFIC ACCIDENT [None]
